FAERS Safety Report 4626872-3 (Version None)
Quarter: 2005Q2

REPORT INFORMATION
  Report Type: 
  Country: None (occurrence: None)
  Receive Date: 20050405
  Receipt Date: 20050322
  Transmission Date: 20051028
  Serious: Yes (Hospitalization, Other)
  Sender: FDA-Public Use
  Company Number: HQWYE281723MAR05

PATIENT
  Sex: Female

DRUGS (3)
  1. ENBREL [Suspect]
     Indication: DRUG USE FOR UNKNOWN INDICATION
     Dosage: UNKNOWN
     Route: 058
  2. MOBIC [Concomitant]
     Dosage: UNKNOWN
     Route: 048
  3. UNSPECIFIED MEDICATION [Concomitant]

REACTIONS (2)
  - RENAL FAILURE ACUTE [None]
  - VOMITING [None]
